FAERS Safety Report 13607290 (Version 3)
Quarter: 2018Q2

REPORT INFORMATION
  Report Type: Spontaneous
  Country: US (occurrence: US)
  Receive Date: 20170602
  Receipt Date: 20180611
  Transmission Date: 20180711
  Serious: Yes (Other)
  Sender: FDA-Public Use
  Company Number: US-PFIZER INC-2017240056

PATIENT
  Age: 66 Year
  Sex: Female
  Weight: 54 kg

DRUGS (10)
  1. ZYRTEC [Concomitant]
     Active Substance: CETIRIZINE HYDROCHLORIDE
     Dosage: 10 MG, DAILY
     Route: 048
  2. ZOLOFT [Concomitant]
     Active Substance: SERTRALINE HYDROCHLORIDE
     Indication: DEPRESSION
     Dosage: 100 MG, 1X/DAY
  3. IBRANCE [Suspect]
     Active Substance: PALBOCICLIB
     Indication: BREAST CANCER FEMALE
     Dosage: 125 MG, CYCLIC (ONE CAPSULE BY MOUTH DAILY FOR 21 DAYS ON 7 DAYS OFF)
     Route: 048
     Dates: start: 201612
  4. SERTRALINE HCL [Concomitant]
     Active Substance: SERTRALINE HYDROCHLORIDE
     Indication: ANXIETY
  5. LETROZOLE. [Concomitant]
     Active Substance: LETROZOLE
     Dosage: 1 DF, DAILY (ONE CAPSULE BY MOUTH DAILY)
     Route: 048
  6. LETROZOLE. [Concomitant]
     Active Substance: LETROZOLE
     Indication: BREAST CANCER METASTATIC
     Dosage: 2.5 MG, DAILY (TAKE 1)
     Route: 048
  7. NADOLOL. [Concomitant]
     Active Substance: NADOLOL
     Indication: SUPRAVENTRICULAR EXTRASYSTOLES
     Dosage: 20 MG, 1X/DAY (TAKE 1 PO)
     Route: 048
  8. LORAZEPAM. [Concomitant]
     Active Substance: LORAZEPAM
     Indication: NAUSEA
     Dosage: 1 MG, AS NEEDED(TAKE 1 PO Q4H PRN)
     Route: 048
  9. SERTRALINE HCL [Concomitant]
     Active Substance: SERTRALINE HYDROCHLORIDE
     Indication: DEPRESSION
     Dosage: 100 MG, DAILY (TAKE 1)
     Route: 048
  10. UREA. [Concomitant]
     Active Substance: UREA
     Dosage: UNK, 2X/DAY(APPLY TO HANDS AND FEET)

REACTIONS (14)
  - Neutropenia [Unknown]
  - Depression [Unknown]
  - Bursitis [Unknown]
  - Nasopharyngitis [Not Recovered/Not Resolved]
  - Neoplasm progression [Unknown]
  - Cough [Recovering/Resolving]
  - Fatigue [Unknown]
  - Seasonal allergy [Unknown]
  - Breath sounds abnormal [Unknown]
  - Contusion [Unknown]
  - Nausea [Recovering/Resolving]
  - Anaemia macrocytic [Unknown]
  - Hypersensitivity [Not Recovered/Not Resolved]
  - Decreased appetite [Unknown]

NARRATIVE: CASE EVENT DATE: 201805
